FAERS Safety Report 7672897-3 (Version None)
Quarter: 2011Q3

REPORT INFORMATION
  Report Type: 
  Country: None (occurrence: None)
  Receive Date: 20110809
  Receipt Date: 20110802
  Transmission Date: 20111222
  Serious: Yes (Hospitalization)
  Sender: FDA-Public Use
  Company Number: US-GENENTECH-322408

PATIENT
  Age: 15 Year
  Sex: Female

DRUGS (1)
  1. PULMOZYME [Suspect]
     Indication: PRODUCT USED FOR UNKNOWN INDICATION

REACTIONS (8)
  - LUNG DISORDER [None]
  - BRONCHIAL WALL THICKENING [None]
  - URTICARIA [None]
  - BACTERIAL INFECTION [None]
  - HAEMOPTYSIS [None]
  - ASTHMA [None]
  - SINUS DISORDER [None]
  - PANCREATIC INSUFFICIENCY [None]
